FAERS Safety Report 9338853 (Version 2)
Quarter: 2017Q1

REPORT INFORMATION
  Report Type: Report from Study
  Country: US (occurrence: US)
  Receive Date: 20130610
  Receipt Date: 20170111
  Transmission Date: 20170429
  Serious: Yes (Other)
  Sender: FDA-Public Use
  Company Number: US-ROCHE-1231664

PATIENT

DRUGS (4)
  1. TRASTUZUMAB [Suspect]
     Active Substance: TRASTUZUMAB
     Route: 042
  2. TRASTUZUMAB [Suspect]
     Active Substance: TRASTUZUMAB
     Indication: HER-2 POSITIVE BREAST CANCER
     Dosage: LOADING DOSE
     Route: 042
  3. RETASPIMYCIN HYDROCHLORIDE [Suspect]
     Active Substance: RETASPIMYCIN HYDROCHLORIDE
     Indication: HER-2 POSITIVE BREAST CANCER
     Route: 065
  4. RETASPIMYCIN HYDROCHLORIDE [Suspect]
     Active Substance: RETASPIMYCIN HYDROCHLORIDE
     Dosage: FOR 2 WEEKS FOLLOWED BY 1 WEEK OFF TREATMENT
     Route: 065

REACTIONS (9)
  - Aspartate aminotransferase increased [Recovered/Resolved]
  - Nausea [Unknown]
  - Lipase increased [Recovered/Resolved]
  - Diarrhoea [Unknown]
  - Hypokalaemia [Recovered/Resolved]
  - Alanine aminotransferase increased [Recovered/Resolved]
  - Transaminases increased [Unknown]
  - Gamma-glutamyltransferase increased [Recovered/Resolved]
  - Vomiting [Unknown]
